FAERS Safety Report 10197019 (Version 2)
Quarter: 2014Q2

REPORT INFORMATION
  Report Type: Report from Study
  Country: JP (occurrence: JP)
  Receive Date: 20140527
  Receipt Date: 20140527
  Transmission Date: 20141212
  Serious: Yes (Congenital Anomaly, Other)
  Sender: FDA-Public Use
  Company Number: JP-ASTELLAS-2011JP006793

PATIENT
  Age: 27 Year
  Sex: Female

DRUGS (17)
  1. TACROLIMUS [Suspect]
     Indication: LUPUS NEPHRITIS
     Route: 048
     Dates: start: 20080812, end: 20121120
  2. GASTER D [Concomitant]
     Indication: PROPHYLAXIS
     Route: 048
  3. PREDNISOLONE [Concomitant]
     Indication: LUPUS NEPHRITIS
     Route: 048
     Dates: end: 20090127
  4. PREDNISOLONE [Concomitant]
     Route: 048
     Dates: start: 20090128, end: 20090616
  5. PREDNISOLONE [Concomitant]
     Route: 048
     Dates: start: 20090617, end: 20091117
  6. PREDNISOLONE [Concomitant]
     Route: 048
     Dates: start: 20091118, end: 20100615
  7. PREDNISOLONE [Concomitant]
     Route: 048
     Dates: start: 20100616, end: 20130115
  8. PREDNISOLONE [Concomitant]
     Route: 048
     Dates: start: 20130116, end: 20130604
  9. PREDNISOLONE [Concomitant]
     Route: 048
     Dates: start: 20130605, end: 20130802
  10. PREDNISOLONE [Concomitant]
     Route: 048
     Dates: start: 20130803
  11. WARFARIN [Concomitant]
     Indication: LUPUS NEPHRITIS
     Route: 048
  12. BEZATOL SR [Concomitant]
     Indication: PRODUCT USED FOR UNKNOWN INDICATION
     Dosage: UNK, UNKNOWN FREQ.
     Route: 048
     Dates: end: 20100119
  13. ALFAROL [Concomitant]
     Indication: PROPHYLAXIS
     Dosage: 0.5 ?G, ONCE DAILY
     Route: 048
     Dates: end: 20120625
  14. ALFAROL [Concomitant]
     Dosage: 0.5 ?G, ONCE DAILY
     Route: 048
     Dates: start: 20121023
  15. ACTONEL [Concomitant]
     Indication: PROPHYLAXIS
     Dosage: UNK, UNKNOWN FREQ.
     Route: 048
     Dates: end: 20100119
  16. NEORAL [Concomitant]
     Indication: LUPUS NEPHRITIS
     Route: 048
     Dates: start: 20121221
  17. EDIROL [Concomitant]
     Indication: PROPHYLAXIS
     Dosage: 0.75 ?G, ONCE DAILY
     Route: 048
     Dates: start: 20120626, end: 20120925

REACTIONS (3)
  - Gastrointestinal motility disorder [Recovered/Resolved]
  - Systemic lupus erythematosus [Recovered/Resolved]
  - Supraventricular tachycardia [Recovered/Resolved]
